FAERS Safety Report 4857040-8 (Version None)
Quarter: 2005Q4

REPORT INFORMATION
  Report Type: 
  Country: None (occurrence: None)
  Receive Date: 20051219
  Receipt Date: 20041215
  Transmission Date: 20060501
  Serious: No
  Sender: FDA-Public Use
  Company Number: US-GLAXOSMITHKLINE-A0537377A

PATIENT
  Age: 28 Year
  Sex: Male

DRUGS (1)
  1. EQUATE NTS 21MG [Suspect]
     Dates: start: 20041212

REACTIONS (4)
  - HEART RATE INCREASED [None]
  - INSOMNIA [None]
  - MALAISE [None]
  - PHARYNGOLARYNGEAL PAIN [None]
